FAERS Safety Report 25208979 (Version 1)
Quarter: 2025Q2

REPORT INFORMATION
  Report Type: Spontaneous
  Country: DE (occurrence: DE)
  Receive Date: 20250417
  Receipt Date: 20250417
  Transmission Date: 20250717
  Serious: Yes (Life-Threatening, Hospitalization, Other)
  Sender: BRISTOL MYERS SQUIBB
  Company Number: DE-AMK-286336

PATIENT
  Age: 40 Year
  Sex: Male
  Weight: 118 kg

DRUGS (5)
  1. YERVOY [Suspect]
     Active Substance: IPILIMUMAB
     Indication: Renal cell carcinoma
     Dates: start: 20250224
  2. YERVOY [Suspect]
     Active Substance: IPILIMUMAB
     Dates: start: 20250224
  3. YERVOY [Suspect]
     Active Substance: IPILIMUMAB
     Dates: start: 20250224
  4. YERVOY [Suspect]
     Active Substance: IPILIMUMAB
     Dates: start: 20250224
  5. OPDIVO [Suspect]
     Active Substance: NIVOLUMAB
     Indication: Non-small cell lung cancer
     Dates: start: 20250220

REACTIONS (6)
  - Pancreatitis [Not Recovered/Not Resolved]
  - Diabetic ketoacidosis [Not Recovered/Not Resolved]
  - Acute kidney injury [Not Recovered/Not Resolved]
  - Cognitive disorder [Not Recovered/Not Resolved]
  - Sinus tachycardia [Not Recovered/Not Resolved]
  - Tachypnoea [Not Recovered/Not Resolved]

NARRATIVE: CASE EVENT DATE: 20250313
